FAERS Safety Report 11814536 (Version 1)
Quarter: 2015Q4

REPORT INFORMATION
  Report Type: Other
  Country: CL (occurrence: CL)
  Receive Date: 20151209
  Receipt Date: 20151209
  Transmission Date: 20160305
  Serious: Yes (Other)
  Sender: FDA-Public Use
  Company Number: CL-LUNDBECK-DKLU2007154

PATIENT
  Sex: Female

DRUGS (4)
  1. VIGABATRIN (TABLET) [Suspect]
     Active Substance: VIGABATRIN
     Route: 065
  2. ACTH [Concomitant]
     Active Substance: CORTICOTROPIN
     Indication: PRODUCT USED FOR UNKNOWN INDICATION
     Route: 065
  3. VIGABATRIN (TABLET) [Suspect]
     Active Substance: VIGABATRIN
     Indication: INFANTILE SPASMS
     Route: 065
  4. VIGABATRIN (TABLET) [Suspect]
     Active Substance: VIGABATRIN
     Route: 065

REACTIONS (2)
  - Nuclear magnetic resonance imaging abnormal [Not Recovered/Not Resolved]
  - Ataxia [Recovered/Resolved]
